FAERS Safety Report 4322437-1 (Version None)
Quarter: 2004Q1

REPORT INFORMATION
  Report Type: 
  Country: None (occurrence: None)
  Receive Date: 20040319
  Receipt Date: 20040311
  Transmission Date: 20041129
  Serious: Yes (Hospitalization)
  Sender: FDA-Public Use
  Company Number: 2004200410JP

PATIENT
  Age: 17 Year
  Sex: Female

DRUGS (4)
  1. ALPRAZOLAM [Suspect]
     Indication: INSOMNIA
     Dosage: 11.2 MG/DAY, ORAL
     Route: 048
     Dates: start: 20040215, end: 20040215
  2. MERISLON (BETAHISTINE HYDROCHLORIDE) [Concomitant]
  3. ADENOSINE TRIPHOSPHATE (ADENOSINE TRIPHOSPHATE) [Concomitant]
  4. METHYCOBAL (MECOBALAMIN) [Concomitant]

REACTIONS (10)
  - AMNESIA [None]
  - BALANCE DISORDER [None]
  - COORDINATION ABNORMAL [None]
  - DIZZINESS [None]
  - GAIT DISTURBANCE [None]
  - HYPERSOMNIA [None]
  - MEDICATION ERROR [None]
  - MUSCULAR WEAKNESS [None]
  - SOMNOLENCE [None]
  - SPEECH DISORDER [None]
